FAERS Safety Report 18511924 (Version 1)
Quarter: 2020Q4

REPORT INFORMATION
  Report Type: Report from Study
  Country: US (occurrence: US)
  Receive Date: 20201117
  Receipt Date: 20201117
  Transmission Date: 20210114
  Serious: Yes (Hospitalization)
  Sender: FDA-Public Use
  Company Number: US-TAKEDA-US202033830

PATIENT
  Age: 11 Year
  Sex: Male
  Weight: 29 kg

DRUGS (11)
  1. TEDUGLUTIDE [Suspect]
     Active Substance: TEDUGLUTIDE
     Indication: SHORT-BOWEL SYNDROME
     Dosage: 9 (UNIT: UNKNOWN), QD
     Route: 058
     Dates: start: 20140528, end: 20141020
  2. LOVENOX [LEVOFLOXACIN] [Concomitant]
     Active Substance: LEVOFLOXACIN
     Indication: PRODUCT USED FOR UNKNOWN INDICATION
  3. TEDUGLUTIDE [Suspect]
     Active Substance: TEDUGLUTIDE
     Dosage: 11 UNIT: UNKNOWN, QD
     Route: 058
     Dates: start: 20170516, end: 20200828
  4. TEDUGLUTIDE [Suspect]
     Active Substance: TEDUGLUTIDE
     Dosage: 11 UNIT: UNKNOWN, QD
     Route: 058
     Dates: start: 20170516, end: 20200828
  5. TEDUGLUTIDE [Suspect]
     Active Substance: TEDUGLUTIDE
     Dosage: 11 UNIT: UNKNOWN, QD
     Route: 058
     Dates: start: 20170516, end: 20200828
  6. TEDUGLUTIDE [Suspect]
     Active Substance: TEDUGLUTIDE
     Dosage: 11 UNIT: UNKNOWN, QD
     Route: 058
     Dates: start: 20170516, end: 20200828
  7. METRONIDAZOLE. [Concomitant]
     Active Substance: METRONIDAZOLE
     Indication: PROPHYLAXIS
     Dosage: UNK
  8. TEDUGLUTIDE [Suspect]
     Active Substance: TEDUGLUTIDE
     Indication: SHORT-BOWEL SYNDROME
     Dosage: 9 (UNIT: UNKNOWN), QD
     Route: 058
     Dates: start: 20140528, end: 20141020
  9. PREVACID [Concomitant]
     Active Substance: LANSOPRAZOLE
     Indication: PRODUCT USED FOR UNKNOWN INDICATION
  10. TEDUGLUTIDE [Suspect]
     Active Substance: TEDUGLUTIDE
     Indication: SHORT-BOWEL SYNDROME
     Dosage: 9 (UNIT: UNKNOWN), QD
     Route: 058
     Dates: start: 20140528, end: 20141020
  11. TEDUGLUTIDE [Suspect]
     Active Substance: TEDUGLUTIDE
     Indication: SHORT-BOWEL SYNDROME
     Dosage: 9 (UNIT: UNKNOWN), QD
     Route: 058
     Dates: start: 20140528, end: 20141020

REACTIONS (1)
  - Complication associated with device [Recovered/Resolved]

NARRATIVE: CASE EVENT DATE: 20200831
